FAERS Safety Report 21755135 (Version 2)
Quarter: 2023Q1

REPORT INFORMATION
  Report Type: Report from Study
  Country: US (occurrence: US)
  Receive Date: 20221220
  Receipt Date: 20230120
  Transmission Date: 20230417
  Serious: No
  Sender: FDA-Public Use
  Company Number: US-ABBVIE-4243366

PATIENT
  Sex: Male

DRUGS (1)
  1. VENCLEXTA [Suspect]
     Active Substance: VENETOCLAX
     Indication: Chronic myeloid leukaemia
     Dosage: TAKE 1 TABLET BY MOUTH DAILY ON DAYS 2 THROUGH 8 AFTER STARTING CHEMO THERAPY,
     Route: 048
     Dates: end: 202211

REACTIONS (5)
  - Blood pressure increased [Unknown]
  - Chest pain [Not Recovered/Not Resolved]
  - Cough [Unknown]
  - Restlessness [Unknown]
  - Vision blurred [Unknown]

NARRATIVE: CASE EVENT DATE: 20220101
